FAERS Safety Report 23989079 (Version 2)
Quarter: 2024Q3

REPORT INFORMATION
  Report Type: Spontaneous
  Country: CO (occurrence: CO)
  Receive Date: 20240619
  Receipt Date: 20240710
  Transmission Date: 20241017
  Serious: Yes (Life-Threatening, Hospitalization)
  Sender: MACLEODS
  Company Number: CO-MLMSERVICE-20240603-PI083306-00117-1

PATIENT

DRUGS (4)
  1. LIDOCAINE [Suspect]
     Active Substance: LIDOCAINE
     Indication: Anaesthesia
     Dosage: 1 %, INJECTION
     Route: 008
  2. BUPIVACAINE [Suspect]
     Active Substance: BUPIVACAINE
     Indication: Anaesthesia
     Route: 008
  3. DEXAMETHASONE SODIUM PHOSPHATE [Suspect]
     Active Substance: DEXAMETHASONE PHOSPHATE\DEXAMETHASONE SODIUM PHOSPHATE
     Indication: Cervical spinal stenosis
     Route: 008
  4. TRIFOLIUM PRATENSE FLOWER [Suspect]
     Active Substance: TRIFOLIUM PRATENSE FLOWER
     Indication: Menopausal symptoms
     Dosage: RED CLOVER, FOR OVER 4 MONTHS
     Route: 065

REACTIONS (2)
  - Myelopathy [Recovered/Resolved]
  - Extradural haematoma [Recovered/Resolved]
